FAERS Safety Report 13104527 (Version 2)
Quarter: 2017Q1

REPORT INFORMATION
  Report Type: Report from Study
  Country: US (occurrence: US)
  Receive Date: 20170111
  Receipt Date: 20170316
  Transmission Date: 20170428
  Serious: Yes (Other)
  Sender: FDA-Public Use
  Company Number: US-GILEAD-2016-0232863

PATIENT
  Age: 59 Year
  Sex: Male
  Weight: 80.27 kg

DRUGS (4)
  1. AMBRISENTAN [Suspect]
     Active Substance: AMBRISENTAN
     Dosage: 5 MG, QD
     Route: 065
     Dates: start: 20160427
  2. REMODULIN [Suspect]
     Active Substance: TREPROSTINIL
     Indication: PULMONARY ARTERIAL HYPERTENSION
     Dosage: 0.030 UG/KG, UNK
     Route: 042
     Dates: start: 20160330
  3. ADCIRCA [Concomitant]
     Active Substance: TADALAFIL
  4. AMBRISENTAN [Suspect]
     Active Substance: AMBRISENTAN
     Indication: PRODUCT USED FOR UNKNOWN INDICATION
     Dosage: 10 MG, QD
     Route: 065

REACTIONS (7)
  - Catheter removal [Recovered/Resolved]
  - Device related infection [Unknown]
  - Catheter site discharge [Unknown]
  - Catheter placement [Recovered/Resolved]
  - Catheter site inflammation [Unknown]
  - Catheter site erythema [Unknown]
  - Catheter site discharge [Recovered/Resolved]

NARRATIVE: CASE EVENT DATE: 20170302
